FAERS Safety Report 6910474-X (Version None)
Quarter: 2010Q3

REPORT INFORMATION
  Report Type: 
  Country: None (occurrence: None)
  Receive Date: 20100806
  Receipt Date: 20100728
  Transmission Date: 20110219
  Serious: Yes (Hospitalization, Other)
  Sender: FDA-Public Use
  Company Number: US-ASTRAZENECA-2010SE35291

PATIENT
  Sex: Female

DRUGS (1)
  1. NEXIUM [Suspect]
     Indication: GASTROOESOPHAGEAL REFLUX DISEASE
     Route: 048
     Dates: start: 19980101

REACTIONS (5)
  - BREAST CANCER [None]
  - CYSTITIS [None]
  - DRUG DOSE OMISSION [None]
  - GALLBLADDER DISORDER [None]
  - HYPERSENSITIVITY [None]
